FAERS Safety Report 5266503-5 (Version None)
Quarter: 2007Q1

REPORT INFORMATION
  Report Type: 
  Country: None (occurrence: None)
  Receive Date: 20070315
  Receipt Date: 20070306
  Transmission Date: 20070707
  Serious: Yes (Hospitalization)
  Sender: FDA-Public Use
  Company Number: DE-ABBOTT-07P-062-0361175-00

PATIENT
  Sex: Female
  Weight: 73 kg

DRUGS (5)
  1. HUMIRA [Suspect]
     Indication: RHEUMATOID ARTHRITIS
     Route: 058
     Dates: start: 20051114, end: 20060206
  2. HUMIRA [Suspect]
     Route: 058
     Dates: start: 20060301, end: 20060504
  3. METHOTREXATE [Concomitant]
     Indication: RHEUMATOID ARTHRITIS
     Route: 048
     Dates: start: 20051114, end: 20060401
  4. PREDNISOLONE [Concomitant]
     Indication: RHEUMATOID ARTHRITIS
     Route: 048
  5. PIROXICAM [Concomitant]
     Indication: RHEUMATOID ARTHRITIS
     Dosage: UNKNOWN DAILY DOSE
     Route: 048

REACTIONS (1)
  - JOINT SURGERY [None]
